FAERS Safety Report 7416128-8 (Version None)
Quarter: 2011Q2

REPORT INFORMATION
  Report Type: 
  Country: None (occurrence: None)
  Receive Date: 20110414
  Receipt Date: 20110331
  Transmission Date: 20111010
  Serious: Yes (Hospitalization)
  Sender: FDA-Public Use
  Company Number: ES-JNJFOC-20110400796

PATIENT
  Age: 41 Year
  Sex: Male

DRUGS (5)
  1. KILOR [Concomitant]
     Indication: IRON DEFICIENCY ANAEMIA
  2. MASTICAL D [Concomitant]
     Indication: BLOOD CALCIUM DECREASED
     Dosage: 1 FD DAILY
     Route: 048
  3. OMEPRAZOLE [Concomitant]
     Route: 048
  4. REMICADE [Suspect]
     Indication: CROHN'S DISEASE
     Route: 042
  5. IMUREL [Suspect]
     Indication: CROHN'S DISEASE
     Route: 048

REACTIONS (3)
  - DISSEMINATED TUBERCULOSIS [None]
  - RENAL FAILURE ACUTE [None]
  - HEPATIC FAILURE [None]
